FAERS Safety Report 6014969-5 (Version None)
Quarter: 2008Q4

REPORT INFORMATION
  Report Type: 
  Country: None (occurrence: None)
  Receive Date: 20081219
  Receipt Date: 20081205
  Transmission Date: 20090506
  Serious: Yes (Hospitalization)
  Sender: FDA-Public Use
  Company Number: FR-GENENTECH-273672

PATIENT
  Sex: Male

DRUGS (5)
  1. MABTHERA [Suspect]
     Indication: B-CELL LYMPHOMA
     Dosage: UNK
     Route: 042
     Dates: start: 20070101, end: 20080801
  2. SOLUPRED [Suspect]
     Indication: B-CELL LYMPHOMA
     Dosage: UNK
     Route: 048
     Dates: start: 20070101, end: 20070501
  3. VINCRISTINE [Suspect]
     Indication: B-CELL LYMPHOMA
     Dosage: 1 MG, UNK
     Route: 042
     Dates: start: 20070101, end: 20070501
  4. CYTOXAN [Suspect]
     Indication: B-CELL LYMPHOMA
     Dosage: UNK
     Route: 042
     Dates: start: 20070101, end: 20070501
  5. ADRIAMYCIN PFS [Suspect]
     Indication: B-CELL LYMPHOMA
     Dosage: UNK
     Dates: start: 20070101, end: 20070501

REACTIONS (2)
  - GRANULOMATOUS LIVER DISEASE [None]
  - SARCOIDOSIS [None]
